FAERS Safety Report 6074851-4 (Version None)
Quarter: 2009Q1

REPORT INFORMATION
  Report Type: 
  Country: None (occurrence: None)
  Receive Date: 20090212
  Receipt Date: 20090205
  Transmission Date: 20090719
  Serious: Yes (Other)
  Sender: FDA-Public Use
  Company Number: US-AMGEN-KDL328454

PATIENT
  Sex: Male

DRUGS (15)
  1. ARANESP [Suspect]
     Indication: RENAL FAILURE CHRONIC
     Route: 058
     Dates: start: 20060125
  2. FERROUS GLUCONATE [Concomitant]
  3. CARVEDILOL [Concomitant]
     Dates: start: 20080901
  4. CARBIDOPA AND LEVODOPA [Concomitant]
     Dates: start: 20060101
  5. PHOSLO [Concomitant]
     Dates: start: 20070101
  6. SODIUM BICARBONATE IN PLASTIC CONTAINER [Concomitant]
     Dates: start: 20060101
  7. ISOSORBIDE MONONITRADE [Concomitant]
     Dates: start: 20081208
  8. VERAPAMIL [Concomitant]
     Dates: start: 20060101
  9. TORSEMIDE [Concomitant]
     Dates: start: 20080901
  10. SIMVASTATIN [Concomitant]
     Dates: start: 20070101
  11. ZANTAC [Concomitant]
     Dates: start: 20080901
  12. ICAPS [Concomitant]
     Dates: start: 20080901
  13. ASPIRIN [Concomitant]
     Dates: start: 20081201
  14. VITAMIN D [Concomitant]
     Dates: start: 20060101
  15. NUTRITIONAL SUPPLEMENT [Concomitant]
     Dates: start: 20070401

REACTIONS (4)
  - ANAEMIA MACROCYTIC [None]
  - DRUG INEFFECTIVE [None]
  - PLEURAL EFFUSION [None]
  - THROMBOCYTOPENIA [None]
